FAERS Safety Report 10234105 (Version 1)
Quarter: 2014Q2

REPORT INFORMATION
  Report Type: Spontaneous
  Country: US (occurrence: US)
  Receive Date: 20140612
  Receipt Date: 20140612
  Transmission Date: 20141212
  Serious: Yes (Hospitalization)
  Sender: FDA-Public Use
  Company Number: US-GLAXOSMITHKLINE-A1069293A

PATIENT
  Age: 53 Year
  Sex: Male

DRUGS (3)
  1. ADVAIR [Suspect]
     Indication: CHRONIC OBSTRUCTIVE PULMONARY DISEASE
     Route: 065
     Dates: start: 20131008
  2. GENERIC ALBUTEROL [Concomitant]
  3. SYMBICORT [Concomitant]

REACTIONS (2)
  - Investigation [Recovered/Resolved]
  - Dyspnoea [Unknown]
